FAERS Safety Report 6124352-X (Version None)
Quarter: 2009Q1

REPORT INFORMATION
  Report Type: 
  Country: None (occurrence: None)
  Receive Date: 20090319
  Receipt Date: 20081021
  Transmission Date: 20090719
  Serious: Yes (Life-Threatening, Hospitalization, Disabling, Other)
  Sender: FDA-Public Use
  Company Number: FR-PFIZER INC-2008025769

PATIENT

DRUGS (1)
  1. CHAMPIX [Suspect]
     Indication: SMOKING CESSATION THERAPY
     Route: 048
     Dates: start: 20080128, end: 20080214

REACTIONS (6)
  - ABNORMAL DREAMS [None]
  - AMNESIA [None]
  - FALL [None]
  - FRACTURE [None]
  - SOMNAMBULISM [None]
  - SUICIDE ATTEMPT [None]
